FAERS Safety Report 6983393-0 (Version None)
Quarter: 2010Q3

REPORT INFORMATION
  Report Type: 
  Country: None (occurrence: None)
  Receive Date: 20100914
  Receipt Date: 20100914
  Transmission Date: 20110219
  Serious: No
  Sender: FDA-Public Use
  Company Number: None

PATIENT
  Age: 67 Year
  Sex: Female
  Weight: 82.5547 kg

DRUGS (2)
  1. AMIODARONE HCL [Suspect]
     Indication: HEART RATE INCREASED
     Dosage: 1 TABLET TWICE DAILY PO
     Route: 048
     Dates: start: 20091027, end: 20100720
  2. PACERONE [Concomitant]

REACTIONS (6)
  - ATAXIA [None]
  - BALANCE DISORDER [None]
  - BLOOD CREATININE INCREASED [None]
  - DRUG TOXICITY [None]
  - DYSKINESIA [None]
  - MUSCULAR WEAKNESS [None]
